FAERS Safety Report 7742660-3 (Version None)
Quarter: 2011Q3

REPORT INFORMATION
  Report Type: 
  Country: None (occurrence: None)
  Receive Date: 20110908
  Receipt Date: 20110908
  Transmission Date: 20111222
  Serious: Yes (Death, Hospitalization)
  Sender: FDA-Public Use
  Company Number: None

PATIENT
  Sex: Male
  Weight: 80 kg

DRUGS (6)
  1. CISPLATIN [Suspect]
     Dosage: 110 MG
     Dates: end: 20100303
  2. ETOPOSIDE [Suspect]
     Dosage: 450 MG
     Dates: end: 20100305
  3. METOPROLOL [Concomitant]
  4. DIAZEPAM [Concomitant]
  5. DILANTIN [Concomitant]
  6. VICODIN [Concomitant]

REACTIONS (8)
  - APHAGIA [None]
  - UNEVALUABLE EVENT [None]
  - ACTIVITIES OF DAILY LIVING IMPAIRED [None]
  - DELIRIUM [None]
  - FATIGUE [None]
  - MENTAL STATUS CHANGES [None]
  - SEPSIS [None]
  - FALL [None]
